FAERS Safety Report 21779091 (Version 1)
Quarter: 2022Q4

REPORT INFORMATION
  Report Type: Spontaneous
  Country: NL (occurrence: NL)
  Receive Date: 20221226
  Receipt Date: 20221226
  Transmission Date: 20230113
  Serious: Yes (Other)
  Sender: FDA-Public Use
  Company Number: None

PATIENT
  Sex: Female
  Weight: 85 kg

DRUGS (3)
  1. FLECAINIDE [Suspect]
     Active Substance: FLECAINIDE
     Indication: Arrhythmia
     Dosage: 1 DOSAGE FORM (TABLET, 50 MG)
     Route: 065
     Dates: start: 20180601, end: 20210201
  2. FLUOXETINE [Suspect]
     Active Substance: FLUOXETINE HYDROCHLORIDE
     Indication: Depression
     Dosage: 20 MG, EVERY 3 DAYS (1 STUK TABLET OM DE DAG)
     Route: 065
     Dates: start: 20080101
  3. LEVOTHYROXINE [Concomitant]
     Active Substance: LEVOTHYROXINE
     Indication: Product used for unknown indication
     Dosage: 112 UG
     Route: 065

REACTIONS (2)
  - Polyneuropathy [Recovered/Resolved]
  - Paraesthesia [Recovered/Resolved]
